FAERS Safety Report 25112514 (Version 1)
Quarter: 2025Q1

REPORT INFORMATION
  Report Type: Spontaneous
  Country: DE (occurrence: DE)
  Receive Date: 20250324
  Receipt Date: 20250324
  Transmission Date: 20250408
  Serious: Yes (Hospitalization, Other)
  Sender: ALEXION PHARMACEUTICALS
  Company Number: DE-SA-2025SA060893

PATIENT
  Age: 18 Day
  Weight: 3.22 kg

DRUGS (15)
  1. NIRSEVIMAB [Suspect]
     Active Substance: NIRSEVIMAB
     Indication: Antiviral prophylaxis
     Route: 065
  2. ESKETAMINE [Concomitant]
     Active Substance: ESKETAMINE
  3. HEPARIN [Concomitant]
     Active Substance: HEPARIN SODIUM
  4. CHOLECALCIFEROL [Concomitant]
     Active Substance: CHOLECALCIFEROL
  5. FUROSEMIDE [Concomitant]
     Active Substance: FUROSEMIDE
  6. PENICILLIN G [Concomitant]
     Active Substance: PENICILLIN G
  7. CLINDAMYCIN [Concomitant]
     Active Substance: CLINDAMYCIN
  8. POTASSIUM CHLORIDE [Concomitant]
     Active Substance: POTASSIUM CHLORIDE
  9. HYDROCORTISONE [Concomitant]
     Active Substance: HYDROCORTISONE
  10. NALBUPHINE [Concomitant]
     Active Substance: NALBUPHINE
  11. CEFOTAXIME [Concomitant]
     Active Substance: CEFOTAXIME SODIUM
  12. NOREPINEPHRINE [Concomitant]
     Active Substance: NOREPINEPHRINE
  13. DEXTROSE [Concomitant]
     Active Substance: DEXTROSE MONOHYDRATE
  14. AMPICILLIN [Concomitant]
     Active Substance: AMPICILLIN
  15. METAMIZOLE [Concomitant]
     Active Substance: METAMIZOLE

REACTIONS (9)
  - Rash [Unknown]
  - Leukopenia [Unknown]
  - Erysipelas [Unknown]
  - Omphalitis [Unknown]
  - Sepsis neonatal [Unknown]
  - Oliguria [Unknown]
  - Hypotension [Unknown]
  - C-reactive protein increased [Unknown]
  - Pyrexia [Unknown]
